FAERS Safety Report 23803750 (Version 1)
Quarter: 2024Q2

REPORT INFORMATION
  Report Type: Spontaneous
  Country: US (occurrence: US)
  Receive Date: 20240501
  Receipt Date: 20240501
  Transmission Date: 20240716
  Serious: Yes (Hospitalization, Disabling, Other)
  Sender: FDA-Public Use
  Company Number: US-MLMSERVICE-20230515-4284579-1

PATIENT

DRUGS (2)
  1. DOXYCYCLINE [Suspect]
     Active Substance: DOXYCYCLINE
     Indication: Lyme disease
     Dosage: 1 DOSAGE FORM
     Route: 065
  2. CEFTRIAXONE [Concomitant]
     Active Substance: CEFTRIAXONE\CEFTRIAXONE SODIUM
     Indication: Evidence based treatment
     Dosage: 100 MILLIGRAM/KILOGRAM/DAY
     Route: 042

REACTIONS (13)
  - Vision blurred [Not Recovered/Not Resolved]
  - Colour blindness [Not Recovered/Not Resolved]
  - Intracranial pressure increased [Unknown]
  - Neurological symptom [Unknown]
  - Condition aggravated [Unknown]
  - Blindness [Not Recovered/Not Resolved]
  - Papilloedema [Unknown]
  - Cranial nerve paralysis [Unknown]
  - Nuchal rigidity [Unknown]
  - Dizziness [Unknown]
  - Fatigue [Unknown]
  - Intentional product use issue [Recovered/Resolved]
  - Off label use [Recovered/Resolved]
